FAERS Safety Report 5427034-2 (Version None)
Quarter: 2007Q3

REPORT INFORMATION
  Report Type: 
  Country: None (occurrence: None)
  Receive Date: 20070824
  Receipt Date: 20070824
  Transmission Date: 20080115
  Serious: Yes (Hospitalization)
  Sender: FDA-Public Use
  Company Number: None

PATIENT
  Sex: Male
  Weight: 122 kg

DRUGS (7)
  1. IRINOTECAN HCL [Suspect]
     Indication: GLIOBLASTOMA MULTIFORME
     Dosage: 325MG/M2 DAY 1, 8, 22, 29 IV
     Route: 042
     Dates: start: 20060928
  2. IRINOTECAN HCL [Suspect]
     Indication: GLIOBLASTOMA MULTIFORME
     Dosage: 325MG/M2 DAY 1, 8, 22, 29 IV
     Route: 042
     Dates: start: 20061004
  3. TEMODAR [Suspect]
     Indication: GLIOBLASTOMA MULTIFORME
     Dosage: 200MG/M2 DAYS 1-5 PO
     Route: 048
     Dates: start: 20060928, end: 20061002
  4. DILANTIN [Concomitant]
  5. PEPCID [Concomitant]
  6. CLORAZEPATE [Concomitant]
  7. DECADRON [Concomitant]

REACTIONS (7)
  - BLOOD ALKALINE PHOSPHATASE INCREASED [None]
  - CONDITION AGGRAVATED [None]
  - CONFUSIONAL STATE [None]
  - CONVULSION [None]
  - DISEASE PROGRESSION [None]
  - HAEMOGLOBIN DECREASED [None]
  - MENTAL STATUS CHANGES [None]
